FAERS Safety Report 5926580-2 (Version None)
Quarter: 2008Q4

REPORT INFORMATION
  Report Type: 
  Country: None (occurrence: None)
  Receive Date: 20081017
  Receipt Date: 20081001
  Transmission Date: 20090506
  Serious: Yes (Hospitalization)
  Sender: FDA-Public Use
  Company Number: GXKR2008TW09422

PATIENT
  Age: 40 Year
  Sex: Female

DRUGS (1)
  1. TRAZODONE HCL [Suspect]
     Indication: GENERALISED ANXIETY DISORDER
     Dosage: 50 MG, DAILY

REACTIONS (7)
  - DRY MOUTH [None]
  - DYSARTHRIA [None]
  - DYSKINESIA [None]
  - DYSTONIA [None]
  - EMOTIONAL DISTRESS [None]
  - HYPOAESTHESIA ORAL [None]
  - TOOTHACHE [None]
